FAERS Safety Report 9983682 (Version 1)
Quarter: 2014Q1

REPORT INFORMATION
  Report Type: Spontaneous
  Country: US (occurrence: US)
  Receive Date: 20140307
  Receipt Date: 20140307
  Transmission Date: 20141002
  Serious: Yes (Death)
  Sender: FDA-Public Use
  Company Number: US-PFIZER INC-2014066424

PATIENT
  Age: 50 Year
  Sex: Male

DRUGS (1)
  1. INLYTA [Suspect]
     Indication: RENAL CANCER STAGE IV
     Dosage: 5 MG, 2X/DAY (AT 2 AM AND 2 PM)
     Dates: start: 20140205

REACTIONS (2)
  - Disease progression [Fatal]
  - Renal cancer stage IV [Fatal]
